FAERS Safety Report 6032972-6 (Version None)
Quarter: 2009Q1

REPORT INFORMATION
  Report Type: 
  Country: None (occurrence: None)
  Receive Date: 20090109
  Receipt Date: 20081230
  Transmission Date: 20090719
  Serious: Yes (Hospitalization)
  Sender: FDA-Public Use
  Company Number: A0761317A

PATIENT
  Age: 70 Year
  Sex: Male
  Weight: 72.5 kg

DRUGS (1)
  1. TOPOTECAN [Suspect]
     Indication: NEOPLASM
     Dosage: 2.3MGM2 PER DAY
     Route: 048
     Dates: start: 20081120

REACTIONS (9)
  - ASTHENIA [None]
  - DECREASED APPETITE [None]
  - DEHYDRATION [None]
  - DIARRHOEA [None]
  - DIZZINESS [None]
  - EATING DISORDER [None]
  - HYPOTENSION [None]
  - NAUSEA [None]
  - VOMITING [None]
